FAERS Safety Report 9886041 (Version 1)
Quarter: 2013Q4

REPORT INFORMATION
  Report Type: Spontaneous
  Country: US (occurrence: None)
  Receive Date: 20131223
  Receipt Date: 20131223
  Transmission Date: 20140711
  Serious: Yes (Other)
  Sender: FDA-Public Use
  Company Number: 217443LEO

PATIENT
  Age: 60 Year
  Sex: Female

DRUGS (2)
  1. PICATO (0.015 %, GEL) [Suspect]
     Indication: ACTINIC KERATOSIS
     Route: 061
     Dates: start: 20120430, end: 20120501
  2. HORMONAL SKIN PRODUCT (HORMONES NOS) [Concomitant]

REACTIONS (6)
  - Application site pain [None]
  - Application site oedema [None]
  - Application site vesicles [None]
  - Application site erythema [None]
  - Skin plaque [None]
  - Application site vesicles [None]
